FAERS Safety Report 18450498 (Version 1)
Quarter: 2020Q4

REPORT INFORMATION
  Report Type: Spontaneous
  Country: CN (occurrence: CN)
  Receive Date: 20201030
  Receipt Date: 20201030
  Transmission Date: 20210114
  Serious: Yes (Other)
  Sender: FDA-Public Use
  Company Number: CN-ASTRAZENECA-2020SF36504

PATIENT
  Age: 61 Year
  Sex: Female

DRUGS (2)
  1. IRESSA [Suspect]
     Active Substance: GEFITINIB
     Indication: NON-SMALL CELL LUNG CANCER
     Route: 048
  2. LIQUORICE [Concomitant]
     Active Substance: LICORICE
     Indication: COUGH
     Route: 065

REACTIONS (7)
  - Epigastric discomfort [Unknown]
  - Drug ineffective [Unknown]
  - Vomiting [Unknown]
  - Pruritus [Unknown]
  - Pleural effusion [Unknown]
  - Drug resistance [Unknown]
  - Ocular hyperaemia [Unknown]
